FAERS Safety Report 9886630 (Version 1)
Quarter: 2014Q1

REPORT INFORMATION
  Report Type: Spontaneous
  Country: US (occurrence: US)
  Receive Date: 20140210
  Receipt Date: 20140210
  Transmission Date: 20141002
  Serious: Yes (Other)
  Sender: FDA-Public Use
  Company Number: CHPA2014US002170

PATIENT
  Age: 71 Year
  Sex: Male

DRUGS (3)
  1. MAALOX UNKNOWN [Suspect]
     Indication: SKIN ULCER
     Dosage: UNK
     Route: 061
     Dates: start: 2012
  2. MAALOX UNKNOWN [Suspect]
     Indication: OFF LABEL USE
  3. PEROXIDE [Concomitant]
     Dosage: UNK
     Dates: start: 2012

REACTIONS (8)
  - Skin ulcer [Unknown]
  - Disease recurrence [Unknown]
  - Throat irritation [Unknown]
  - Chest pain [Unknown]
  - Gastrooesophageal reflux disease [Unknown]
  - Oesophageal disorder [Unknown]
  - Therapeutic response unexpected [Unknown]
  - Incorrect route of drug administration [Unknown]
